FAERS Safety Report 10429573 (Version 1)
Quarter: 2014Q3

REPORT INFORMATION
  Report Type: Spontaneous
  Country: US (occurrence: None)
  Receive Date: 20140902
  Receipt Date: 20140902
  Transmission Date: 20150326
  Serious: Yes (Disabling)
  Sender: FDA-Public Use
  Company Number: None

PATIENT
  Age: 33 Year
  Sex: Female
  Weight: 47.63 kg

DRUGS (1)
  1. LEVOFLOXACIN 500 MG [Suspect]
     Active Substance: LEVOFLOXACIN
     Indication: BACTERIAL INFECTION
     Dosage: 10 PILLS ONCE DAILY TAKEN BY MOUTH
     Route: 048
     Dates: start: 20140823, end: 20140824

REACTIONS (10)
  - Hypoaesthesia [None]
  - Anxiety [None]
  - Dyspnoea [None]
  - Paraesthesia [None]
  - Chest pain [None]
  - Decreased appetite [None]
  - Fatigue [None]
  - Asthenia [None]
  - Dizziness [None]
  - Panic reaction [None]

NARRATIVE: CASE EVENT DATE: 20140824
